FAERS Safety Report 9423587 (Version 4)
Quarter: 2013Q4

REPORT INFORMATION
  Report Type: Spontaneous
  Country: US (occurrence: US)
  Receive Date: 20130726
  Receipt Date: 20131003
  Transmission Date: 20140711
  Serious: Yes (Hospitalization, Other)
  Sender: FDA-Public Use
  Company Number: US-GILEAD-2013-0080172

PATIENT
  Sex: Male

DRUGS (5)
  1. LETAIRIS [Suspect]
     Indication: PULMONARY HYPERTENSION
     Dosage: 1.25 MG, QD
     Route: 048
     Dates: start: 20120719
  2. LETAIRIS [Suspect]
     Indication: DIASTOLIC DYSFUNCTION
  3. LETAIRIS [Suspect]
     Indication: HEART DISEASE CONGENITAL
  4. SILDENAFIL [Concomitant]
  5. ADCIRCA [Concomitant]

REACTIONS (2)
  - Convulsion [Unknown]
  - Loss of consciousness [Unknown]
